FAERS Safety Report 6033478-0 (Version None)
Quarter: 2009Q1

REPORT INFORMATION
  Report Type: 
  Country: None (occurrence: None)
  Receive Date: 20090109
  Receipt Date: 20090107
  Transmission Date: 20090719
  Serious: Yes (Hospitalization)
  Sender: FDA-Public Use
  Company Number: US-B.I. PHARMACEUTICALS,INC./RIDGEFIELD-2008-BP-18679BP

PATIENT
  Age: 63 Year
  Sex: Male

DRUGS (4)
  1. SPIRIVA [Suspect]
     Indication: CHRONIC OBSTRUCTIVE PULMONARY DISEASE
     Dosage: 18MCG
     Dates: start: 20070201, end: 20070801
  2. SPIRIVA [Suspect]
     Dosage: 18MCG
     Route: 055
     Dates: start: 20070801
  3. SPIRIVA [Suspect]
     Dosage: 36MCG
     Route: 055
     Dates: start: 20081201, end: 20081201
  4. CELEBREX [Concomitant]
     Indication: ARTHRITIS

REACTIONS (4)
  - AGEUSIA [None]
  - DYSPNOEA [None]
  - INCORRECT DOSE ADMINISTERED [None]
  - PNEUMONIA [None]
